FAERS Safety Report 6856390-3 (Version None)
Quarter: 2010Q3

REPORT INFORMATION
  Report Type: 
  Country: None (occurrence: None)
  Receive Date: 20100716
  Receipt Date: 20100716
  Transmission Date: 20110219
  Serious: No
  Sender: FDA-Public Use
  Company Number: None

PATIENT

DRUGS (1)
  1. PERCOCET [Suspect]
     Indication: BACK PAIN
     Dosage: 1 TBLET X1 PO
     Route: 048
     Dates: start: 20100612, end: 20100612

REACTIONS (1)
  - HYPOACUSIS [None]
